FAERS Safety Report 15736706 (Version 1)
Quarter: 2018Q4

REPORT INFORMATION
  Report Type: Spontaneous
  Country: HU (occurrence: HU)
  Receive Date: 20181218
  Receipt Date: 20181218
  Transmission Date: 20190205
  Serious: Yes (Other)
  Sender: FDA-Public Use
  Company Number: PHHY2018HU186211

PATIENT
  Sex: Male

DRUGS (1)
  1. VALSARTAN SANDOZ [Suspect]
     Active Substance: VALSARTAN
     Indication: BLOOD PRESSURE ABNORMAL
     Dosage: 1.5 DF, QD
     Route: 065
     Dates: start: 2012, end: 201806

REACTIONS (5)
  - Bowen^s disease [Unknown]
  - Dermatitis [Unknown]
  - Neoplasm malignant [Unknown]
  - Oedema peripheral [Unknown]
  - Rash papular [Unknown]

NARRATIVE: CASE EVENT DATE: 2016
